FAERS Safety Report 5365798-7 (Version None)
Quarter: 2007Q2

REPORT INFORMATION
  Report Type: 
  Country: None (occurrence: None)
  Receive Date: 20070619
  Receipt Date: 20070606
  Transmission Date: 20071010
  Serious: Yes (Death)
  Sender: FDA-Public Use
  Company Number: US020247

PATIENT
  Age: 34 Year
  Sex: Female

DRUGS (1)
  1. FENTORA [Suspect]
     Indication: HEADACHE
     Dosage: 400 MG, BUCCAL
     Route: 002
     Dates: start: 20070501, end: 20070501

REACTIONS (4)
  - DRUG DISPENSING ERROR [None]
  - OVERDOSE [None]
  - SOMNOLENCE [None]
  - SUICIDAL BEHAVIOUR [None]
